FAERS Safety Report 13635225 (Version 1)
Quarter: 2017Q2

REPORT INFORMATION
  Report Type: Spontaneous
  Country: US (occurrence: US)
  Receive Date: 20170609
  Receipt Date: 20170609
  Transmission Date: 20170830
  Serious: No
  Sender: FDA-Public Use
  Company Number: US-PFIZER INC-2017250232

PATIENT
  Age: 76 Year
  Sex: Male
  Weight: 100 kg

DRUGS (1)
  1. TIKOSYN [Suspect]
     Active Substance: DOFETILIDE
     Dosage: EVERY 12 HOURS
     Dates: start: 20170530

REACTIONS (1)
  - Chest discomfort [Unknown]
